FAERS Safety Report 15141993 (Version 4)
Quarter: 2018Q4

REPORT INFORMATION
  Report Type: Report from Study
  Country: ZA (occurrence: ZA)
  Receive Date: 20180713
  Receipt Date: 20181217
  Transmission Date: 20190204
  Serious: Yes (Hospitalization)
  Sender: FDA-Public Use
  Company Number: ZA-SA-2018SA175764

PATIENT
  Age: 37 Year
  Sex: Female

DRUGS (5)
  1. ASPAVOR [Concomitant]
     Active Substance: ATORVASTATIN
     Dosage: 10 MG, QD
     Dates: start: 20180605
  2. GLUCOPHAGE [Concomitant]
     Active Substance: METFORMIN HYDROCHLORIDE
     Dosage: 500 MG, QD
     Dates: start: 20180604
  3. INSULIN GLULISINE [Suspect]
     Active Substance: INSULIN GLULISINE
     Indication: TYPE 2 DIABETES MELLITUS
     Dosage: BREAKFAST DOSE- 8, LUNCH- 8, SUPPER- 8, TID
     Route: 058
     Dates: start: 20180604
  4. OPTISULIN (INSULIN GLARGINE) [Suspect]
     Active Substance: INSULIN GLARGINE
     Indication: TYPE 2 DIABETES MELLITUS
     Dosage: 34 U, HS
     Dates: start: 20180606
  5. WARFARIN [Concomitant]
     Active Substance: WARFARIN
     Dosage: 15 MG, QD
     Dates: start: 20080101

REACTIONS (7)
  - Visual impairment [Not Recovered/Not Resolved]
  - Headache [Not Recovered/Not Resolved]
  - Blood glucose increased [Not Recovered/Not Resolved]
  - Overdose [Unknown]
  - Glycosylated haemoglobin increased [Not Recovered/Not Resolved]
  - Road traffic accident [Unknown]
  - Rhinorrhoea [Not Recovered/Not Resolved]

NARRATIVE: CASE EVENT DATE: 20180606
